FAERS Safety Report 5537637-2 (Version None)
Quarter: 2007Q4

REPORT INFORMATION
  Report Type: 
  Country: None (occurrence: None)
  Receive Date: 20071207
  Receipt Date: 20061117
  Transmission Date: 20080405
  Serious: No
  Sender: FDA-Public Use
  Company Number: US-AMGEN-KDL191684

PATIENT
  Sex: Female

DRUGS (10)
  1. ENBREL [Suspect]
     Indication: ANKYLOSING SPONDYLITIS
     Route: 058
     Dates: start: 20060818
  2. ARAVA [Concomitant]
     Dates: start: 20040101
  3. PREDNISONE TAB [Concomitant]
  4. DAYPRO [Concomitant]
  5. ELAVIL [Concomitant]
  6. EFFEXOR [Concomitant]
  7. GLUCOSAMINE [Concomitant]
  8. PREVACID [Concomitant]
  9. ADVAIR DISKUS 100/50 [Concomitant]
  10. SINGULAIR [Concomitant]

REACTIONS (1)
  - INJECTION SITE REACTION [None]
